FAERS Safety Report 8619873-1 (Version None)
Quarter: 2012Q3

REPORT INFORMATION
  Report Type: 
  Country: None (occurrence: None)
  Receive Date: 20120824
  Receipt Date: 20120820
  Transmission Date: 20120928
  Serious: No
  Sender: FDA-Public Use
  Company Number: US-PFIZER INC-2012170909

PATIENT
  Age: 55 Year
  Sex: Male

DRUGS (3)
  1. LIPITOR [Suspect]
     Indication: BLOOD CHOLESTEROL INCREASED
     Dosage: 10 MG, DAILY DOSE
     Route: 048
     Dates: start: 20030101, end: 20120601
  2. GLUCOTROL XL [Suspect]
     Dosage: UNK
  3. ANTARA (MICRONIZED) [Concomitant]
     Dosage: 130 MG
     Dates: start: 20120420, end: 20120601

REACTIONS (1)
  - MUSCLE SPASMS [None]
